FAERS Safety Report 15721352 (Version 2)
Quarter: 2019Q1

REPORT INFORMATION
  Report Type: Spontaneous
  Country: PT (occurrence: PT)
  Receive Date: 20181214
  Receipt Date: 20190227
  Transmission Date: 20190417
  Serious: Yes (Disabling, Other)
  Sender: FDA-Public Use
  Company Number: PT-AUROBINDO-AUR-APL-2018-060036

PATIENT

DRUGS (8)
  1. LANSOPRAZOLE. [Concomitant]
     Active Substance: LANSOPRAZOLE
     Indication: PROPHYLAXIS AGAINST GASTROINTESTINAL ULCER
     Dosage: 30 MILLIGRAM, ONCE A DAY
     Route: 048
  2. VICTAN [Concomitant]
     Active Substance: ETHYL LOFLAZEPATE
     Indication: ANXIETY
     Dosage: 2 MILLIGRAM, ONCE A DAY, 10 DAYS IN A ROW 1 CP LATER IN SOS
     Route: 048
     Dates: start: 20181026
  3. SEDOXIL [Concomitant]
     Active Substance: MEXAZOLAM
     Indication: ANXIETY
     Dosage: 1 DOSAGE FORM, AS NECESSARY
     Route: 048
  4. MEMANTINE FILM-COATED TABLETS [Suspect]
     Active Substance: MEMANTINE
     Indication: MENTAL DISORDER
     Dosage: 20 MILLIGRAM, DAILY, REDUCED TO HALF A TABLET ON 12-17-2018 WITHOUT MEDICAL ADVICE
     Route: 048
     Dates: start: 20181028
  5. BETMIGA [Concomitant]
     Active Substance: MIRABEGRON
     Indication: URINARY INCONTINENCE
     Dosage: 50 MILLIGRAM, ONCE A DAY
     Route: 048
  6. MOLINAR [Concomitant]
     Indication: VITAMIN D DECREASED
     Dosage: 1 DOSAGE FORM, 1 MONTH
     Route: 048
  7. SERTRALINE [Suspect]
     Active Substance: SERTRALINE HYDROCHLORIDE
     Indication: DEPRESSION
     Dosage: 50 MILLIGRAM, DAILY
     Route: 048
     Dates: start: 20171220
  8. RIVOTRIL [Concomitant]
     Active Substance: CLONAZEPAM
     Indication: PRODUCT USED FOR UNKNOWN INDICATION
     Dosage: 1 MILLIGRAM, ONCE A DAY
     Route: 048

REACTIONS (6)
  - Photophobia [Recovering/Resolving]
  - Headache [Recovering/Resolving]
  - Fatigue [Recovering/Resolving]
  - Hyperacusis [Recovering/Resolving]
  - Nausea [Recovering/Resolving]
  - Anxiety [Recovering/Resolving]

NARRATIVE: CASE EVENT DATE: 201811
